FAERS Safety Report 12288676 (Version 2)
Quarter: 2016Q2

REPORT INFORMATION
  Report Type: Spontaneous
  Country: US (occurrence: US)
  Receive Date: 20160421
  Receipt Date: 20160421
  Transmission Date: 20160815
  Serious: No
  Sender: FDA-Public Use
  Company Number: US-SUN PHARMACEUTICAL INDUSTRIES LTD-2015US-110328

PATIENT
  Sex: Female

DRUGS (1)
  1. TRAZODONE [Suspect]
     Active Substance: TRAZODONE HYDROCHLORIDE
     Indication: INSOMNIA
     Dosage: UNK
     Route: 065
     Dates: start: 2015

REACTIONS (5)
  - Dysphagia [Unknown]
  - Dysphonia [Unknown]
  - Product physical issue [Unknown]
  - Throat irritation [Unknown]
  - Foreign body [Unknown]

NARRATIVE: CASE EVENT DATE: 2015
